FAERS Safety Report 6547793-5 (Version None)
Quarter: 2010Q1

REPORT INFORMATION
  Report Type: 
  Country: None (occurrence: None)
  Receive Date: 20100124
  Receipt Date: 20091015
  Transmission Date: 20100710
  Serious: No
  Sender: FDA-Public Use
  Company Number: US-ALEXION-A200900853

PATIENT

DRUGS (6)
  1. SOLIRIS [Suspect]
     Indication: PAROXYSMAL NOCTURNAL HAEMOGLOBINURIA
     Dosage: 600 MG, QW
     Route: 042
  2. SOLIRIS [Suspect]
     Dosage: 900 MG, Q2W
     Route: 042
  3. SOLIRIS [Suspect]
     Dosage: 900 MG, SINGLE
     Route: 042
     Dates: start: 20091028, end: 20091028
  4. COUMADIN [Concomitant]
     Dosage: 5 MG, UNK
     Route: 048
     Dates: start: 20091001, end: 20091104
  5. COUMADIN [Concomitant]
     Dosage: 4 MG, UNK
     Route: 048
     Dates: start: 20091105
  6. LORAZEPAM [Concomitant]
     Dosage: UNK
     Route: 048

REACTIONS (3)
  - BLOOD BILIRUBIN INCREASED [None]
  - BLOOD LACTATE DEHYDROGENASE INCREASED [None]
  - HAEMOGLOBIN DECREASED [None]
